FAERS Safety Report 9046333 (Version 2)
Quarter: 2013Q1

REPORT INFORMATION
  Report Type: Spontaneous
  Country: GB (occurrence: GB)
  Receive Date: 20130201
  Receipt Date: 20130222
  Transmission Date: 20140127
  Serious: Yes (Other)
  Sender: FDA-Public Use
  Company Number: GB-JNJFOC-20130114659

PATIENT
  Age: 54 None
  Sex: Female
  Weight: 68 kg

DRUGS (3)
  1. STELARA [Suspect]
     Indication: PSORIASIS
     Route: 058
  2. THYROXINE [Concomitant]
     Route: 065
     Dates: start: 2000
  3. ETORICOXIB [Concomitant]
     Indication: ARTHRITIS
     Route: 065
     Dates: start: 2010

REACTIONS (2)
  - Biliary cirrhosis primary [Recovering/Resolving]
  - Liver function test abnormal [Recovering/Resolving]
